FAERS Safety Report 9441378 (Version 1)
Quarter: 2013Q3

REPORT INFORMATION
  Report Type: Spontaneous
  Country: GB (occurrence: GB)
  Receive Date: 20130805
  Receipt Date: 20130805
  Transmission Date: 20140515
  Serious: Yes (Death, Other)
  Sender: FDA-Public Use
  Company Number: GB-B.I. PHARMACEUTICALS,INC./RIDGEFIELD-2013-UK-01600UK

PATIENT
  Age: 66 Year
  Sex: Male
  Weight: 88 kg

DRUGS (7)
  1. TRAJENTA [Suspect]
     Indication: DIABETES MELLITUS INADEQUATE CONTROL
     Dosage: 5 MG
     Route: 048
     Dates: start: 20121218, end: 20130711
  2. BISOPROLOL [Concomitant]
  3. EZETIMIBE [Concomitant]
  4. GLICLAZIDE [Concomitant]
  5. METFORMIN [Concomitant]
  6. PERINDOPRIL [Concomitant]
  7. SIMVASTATIN [Concomitant]

REACTIONS (1)
  - Pancreatic carcinoma metastatic [Fatal]
